FAERS Safety Report 6417076-2 (Version None)
Quarter: 2009Q4

REPORT INFORMATION
  Report Type: 
  Country: None (occurrence: None)
  Receive Date: 20091028
  Receipt Date: 20091021
  Transmission Date: 20100525
  Serious: Yes (Other)
  Sender: FDA-Public Use
  Company Number: US-BIOGENIDEC-2009BI032386

PATIENT
  Sex: Female

DRUGS (1)
  1. AVONEX [Suspect]
     Indication: MULTIPLE SCLEROSIS
     Route: 030
     Dates: start: 20060426, end: 20070201

REACTIONS (4)
  - ANAEMIA [None]
  - BACK PAIN [None]
  - HAEMORRHAGIC DISORDER [None]
  - URINARY TRACT INFECTION [None]
